FAERS Safety Report 8085726-3 (Version None)
Quarter: 2012Q1

REPORT INFORMATION
  Report Type: 
  Country: None (occurrence: None)
  Receive Date: 20120128
  Receipt Date: 20110607
  Transmission Date: 20120608
  Serious: No
  Sender: FDA-Public Use
  Company Number: US-ABBOTT-11P-163-0731074-00

PATIENT
  Sex: Female
  Weight: 43.13 kg

DRUGS (2)
  1. HUMIRA [Suspect]
     Indication: JUVENILE ARTHRITIS
     Route: 058
     Dates: start: 20100101
  2. METHOTREXATE [Concomitant]
     Indication: JUVENILE ARTHRITIS

REACTIONS (2)
  - INJECTION SITE PAIN [None]
  - INJECTION SITE ERYTHEMA [None]
